FAERS Safety Report 25630406 (Version 2)
Quarter: 2025Q4

REPORT INFORMATION
  Report Type: Spontaneous
  Country: JP (occurrence: JP)
  Receive Date: 20250801
  Receipt Date: 20251201
  Transmission Date: 20260118
  Serious: Yes (Hospitalization)
  Sender: GLAXOSMITHKLINE
  Company Number: JP-GSK-JP2025095970

PATIENT
  Age: 87 Year
  Sex: Female
  Weight: 41.54 kg

DRUGS (8)
  1. MOMELOTINIB [Suspect]
     Active Substance: MOMELOTINIB
     Indication: Primary myelofibrosis
     Dosage: 200 MG, 1D
  2. MOMELOTINIB [Suspect]
     Active Substance: MOMELOTINIB
     Dosage: 200 MG, 1D
  3. MOMELOTINIB [Suspect]
     Active Substance: MOMELOTINIB
     Dosage: 400 MG, QD
  4. METHENOLONE [Suspect]
     Active Substance: METHENOLONE
     Indication: Anaemia
     Dosage: 5 MG, QD
  5. ROXADUSTAT [Suspect]
     Active Substance: ROXADUSTAT
     Indication: Anaemia
     Dosage: 50 MG, 3/W
  6. OLANZAPINE [Suspect]
     Active Substance: OLANZAPINE
     Indication: Restlessness
     Dosage: 5.0 MG, QD
  7. PEROSPIRONE HYDROCHLORIDE [Suspect]
     Active Substance: PEROSPIRONE HYDROCHLORIDE
     Indication: Restlessness
     Dosage: 4 MG, QD
  8. MOSAPRIDE CITRATE [Concomitant]
     Active Substance: MOSAPRIDE CITRATE
     Indication: Abdominal discomfort
     Dosage: 15 MG, QD

REACTIONS (6)
  - Liver disorder [Recovered/Resolved]
  - Liver disorder [Recovered/Resolved]
  - Anaemia [Unknown]
  - Abdominal discomfort [Unknown]
  - Restlessness [Unknown]
  - Accidental overdose [Unknown]

NARRATIVE: CASE EVENT DATE: 20250401
